FAERS Safety Report 20192771 (Version 2)
Quarter: 2022Q1

REPORT INFORMATION
  Report Type: Other
  Country: CA (occurrence: CA)
  Receive Date: 20211216
  Receipt Date: 20220222
  Transmission Date: 20220424
  Serious: Yes (Hospitalization, Other)
  Sender: FDA-Public Use
  Company Number: CA-CELLTRION INC.-2021CA016948

PATIENT

DRUGS (27)
  1. RITUXIMAB [Suspect]
     Active Substance: RITUXIMAB
     Indication: Rheumatoid arthritis
     Dosage: 1000 MILLIGRAM
     Route: 065
  2. RITUXIMAB [Suspect]
     Active Substance: RITUXIMAB
     Indication: Pulmonary fibrosis
     Dosage: 1000 MILLIGRAM
     Route: 042
  3. LEVAQUIN [Suspect]
     Active Substance: LEVOFLOXACIN
     Indication: Pneumonia
     Route: 065
  4. ACETAMINOPHEN [Concomitant]
     Active Substance: ACETAMINOPHEN
     Dosage: 500 MILLIGRAM
     Route: 048
  5. BENADRYL [Concomitant]
     Active Substance: DIPHENHYDRAMINE HYDROCHLORIDE
     Indication: Premedication
     Dosage: 25 MILLIGRAM
     Route: 048
  6. CALCIUM [Concomitant]
     Active Substance: CALCIUM
     Dosage: 500 MILLIGRAM
     Route: 048
  7. CEFIXIME [Concomitant]
     Active Substance: CEFIXIME
     Dosage: 100 MILLIGRAM, 1 EVERY 1 DAYS
     Route: 048
  8. CEFIXIME [Concomitant]
     Active Substance: CEFIXIME
     Dosage: 10.0 MILLIGRAM, 1 EVERY 1 DAYS
     Route: 048
  9. CITALOPRAM [Concomitant]
     Active Substance: CITALOPRAM HYDROBROMIDE
     Dosage: 20 MILLIGRAM, 1 EVERY 1 DAYS
     Route: 048
  10. DEXILANT [Concomitant]
     Active Substance: DEXLANSOPRAZOLE
     Dosage: 30 MILLIGRAM, 1 EVERY 1 DAYS
     Route: 048
  11. DEXILANT [Concomitant]
     Active Substance: DEXLANSOPRAZOLE
     Dosage: 30.0 MILLIGRAM, 1 EVERY 1 DAYS
     Route: 048
  12. ERGOCALCIFEROL [Concomitant]
     Active Substance: ERGOCALCIFEROL
     Dosage: 400.0 IU (INTERNATION UNITS), 2 EVERY 1 DAYS
     Route: 048
  13. ESTRACE [Concomitant]
     Active Substance: ESTRADIOL
     Dosage: 0.5 MILLIGRAM, 1 EVERY 1 DAYS
     Route: 048
  14. ESTRACE [Concomitant]
     Active Substance: ESTRADIOL
     Dosage: 0.5 MILLIGRAM, 1 EVERY 1 DAYS
     Route: 048
  15. FELODIPINE [Concomitant]
     Active Substance: FELODIPINE
     Route: 061
  16. FUSIDIC ACID [Concomitant]
     Active Substance: FUSIDIC ACID
     Route: 061
  17. IRBESARTAN [Concomitant]
     Active Substance: IRBESARTAN
     Indication: Blood pressure measurement
     Dosage: 1 EVERY 1 DAY
     Route: 048
  18. IRBESARTAN [Concomitant]
     Active Substance: IRBESARTAN
     Indication: Blood pressure measurement
     Dosage: 1 EVERY 1 DAYS
     Route: 048
  19. MOXIFLOXACIN HYDROCHLORIDE [Concomitant]
     Active Substance: MOXIFLOXACIN HYDROCHLORIDE
  20. PREDNISONE [Concomitant]
     Active Substance: PREDNISONE
     Dosage: 10 MILLIGRAM, 1 EVERY 1 DAY
     Route: 048
  21. PROLIA [Concomitant]
     Active Substance: DENOSUMAB
     Indication: Osteoporosis
     Dosage: 60 ML
     Route: 058
  22. PROLIA [Concomitant]
     Active Substance: DENOSUMAB
     Indication: Osteoporosis
     Dosage: 60.0 ML
     Route: 058
  23. ALBUTEROL [Concomitant]
     Active Substance: ALBUTEROL
     Indication: Asthma
     Dosage: 200 MICROGRAM, 4 EVERY 1 DAY
  24. SOLU-MEDROL [Concomitant]
     Active Substance: METHYLPREDNISOLONE SODIUM SUCCINATE
     Indication: Premedication
     Dosage: 100 MILLIGRAM
     Route: 042
  25. TRAMADOL [Concomitant]
     Active Substance: TRAMADOL
     Route: 061
  26. TYLENOL [Concomitant]
     Active Substance: ACETAMINOPHEN
     Indication: Premedication
     Dosage: 650 MILLIGRAM
     Route: 042
  27. XELJANZ [Concomitant]
     Active Substance: TOFACITINIB CITRATE
     Dosage: 5 MILLIGRAM, 2 EVERY 1 DAY
     Route: 048

REACTIONS (9)
  - Blood pressure systolic abnormal [Unknown]
  - Blood pressure systolic increased [Unknown]
  - Heart valve incompetence [Unknown]
  - Oxygen saturation decreased [Unknown]
  - Clostridium difficile infection [Unknown]
  - Heart rate increased [Unknown]
  - Pneumonia [Unknown]
  - Off label use [Unknown]
  - Off label use [Unknown]
